FAERS Safety Report 9913200 (Version 1)
Quarter: 2014Q1

REPORT INFORMATION
  Report Type: Spontaneous
  Country: US (occurrence: None)
  Receive Date: 20140218
  Receipt Date: 20140218
  Transmission Date: 20141002
  Serious: No
  Sender: FDA-Public Use
  Company Number: None

PATIENT
  Age: 25 Year
  Sex: Female
  Weight: 81.65 kg

DRUGS (6)
  1. MAKENA [Suspect]
     Indication: PROPHYLAXIS
     Route: 030
     Dates: start: 20140122, end: 20140212
  2. PRENATAL PLUS [Concomitant]
  3. ASA [Concomitant]
  4. PULMICORT [Concomitant]
  5. VENTOLIN [Concomitant]
  6. FIORICET [Concomitant]

REACTIONS (3)
  - Palpitations [None]
  - Rash [None]
  - Rash [None]
